FAERS Safety Report 5242051-3 (Version None)
Quarter: 2007Q1

REPORT INFORMATION
  Report Type: 
  Country: None (occurrence: None)
  Receive Date: 20070212
  Receipt Date: 20070201
  Transmission Date: 20070707
  Serious: Yes (Other)
  Sender: FDA-Public Use
  Company Number: 2006SP003484

PATIENT
  Age: 28 Year
  Sex: Male

DRUGS (7)
  1. PEG-INTRON [Suspect]
     Indication: HEPATITIS C
     Dosage: SEE IMAGE
     Dates: start: 20051121, end: 20060301
  2. PEG-INTRON [Suspect]
     Indication: HEPATITIS C
     Dosage: SEE IMAGE
     Dates: start: 20060301, end: 20061215
  3. REBETOL [Suspect]
     Indication: HEPATITIS C
     Dosage: SEE IMAGE
     Dates: start: 20051121, end: 20060301
  4. REBETOL [Suspect]
     Indication: HEPATITIS C
     Dosage: SEE IMAGE
     Dates: start: 20060301, end: 20061215
  5. SEROQUEL [Concomitant]
  6. TOPAMAX [Concomitant]
  7. TRAZODONE HCL [Concomitant]

REACTIONS (29)
  - ANXIETY [None]
  - ASTHENIA [None]
  - CONFUSIONAL STATE [None]
  - CONSTIPATION [None]
  - DECREASED APPETITE [None]
  - DEHYDRATION [None]
  - DEPRESSION [None]
  - DRUG ABUSER [None]
  - DRUG INEFFECTIVE [None]
  - DYSPEPSIA [None]
  - FEELING ABNORMAL [None]
  - FOOD CRAVING [None]
  - HEPATOCELLULAR DAMAGE [None]
  - HYPERPHAGIA [None]
  - HYPERSOMNIA [None]
  - ILL-DEFINED DISORDER [None]
  - INFLUENZA [None]
  - MEMORY IMPAIRMENT [None]
  - MUSCLE SPASMS [None]
  - MUSCLE TIGHTNESS [None]
  - MYALGIA [None]
  - NASOPHARYNGITIS [None]
  - NAUSEA [None]
  - PARANOIA [None]
  - PSYCHIATRIC SYMPTOM [None]
  - SELF ESTEEM DECREASED [None]
  - SUICIDAL IDEATION [None]
  - TREMOR [None]
  - WHITE BLOOD CELL COUNT DECREASED [None]
